FAERS Safety Report 8315392-0 (Version None)
Quarter: 2012Q2

REPORT INFORMATION
  Report Type: 
  Country: None (occurrence: None)
  Receive Date: 20120426
  Receipt Date: 20120418
  Transmission Date: 20120825
  Serious: Yes (Hospitalization)
  Sender: FDA-Public Use
  Company Number: GB-TEVA-333723ISR

PATIENT
  Age: 75 Year
  Sex: Female
  Weight: 90 kg

DRUGS (4)
  1. AMLODIPINE [Concomitant]
  2. ADCAL-D3 [Concomitant]
  3. OLANZAPINE [Suspect]
     Indication: BIPOLAR I DISORDER
     Route: 048
     Dates: end: 20120410
  4. VALPROATE SODIUM [Suspect]
     Indication: BIPOLAR I DISORDER
     Route: 048
     Dates: end: 20120410

REACTIONS (1)
  - PANCYTOPENIA [None]
